FAERS Safety Report 17556247 (Version 1)
Quarter: 2020Q1

REPORT INFORMATION
  Report Type: Spontaneous
  Country: US (occurrence: US)
  Receive Date: 20200318
  Receipt Date: 20200318
  Transmission Date: 20200409
  Serious: No
  Sender: FDA-Public Use
  Company Number: US-THERAPEUTICSMD-2019TMD05168

PATIENT
  Age: 50 Year
  Sex: Female
  Weight: 62.59 kg

DRUGS (8)
  1. CHASTINE VITAMINS [Concomitant]
  2. IMVEXXY [Suspect]
     Active Substance: ESTRADIOL
     Indication: ATROPHIC VULVOVAGINITIS
     Dosage: UNK, 2X/WEEK, BEFORE BEDTIME
     Route: 067
     Dates: start: 201911, end: 20191209
  3. MOVE FREE SUPPLEMENT [Concomitant]
  4. IMVEXXY [Suspect]
     Active Substance: ESTRADIOL
     Indication: URINARY TRACT INFECTION
  5. CREW OIL [Concomitant]
  6. UNSPECIFIED SUPPLEMENTS [Concomitant]
  7. TURMERIC [Concomitant]
     Active Substance: HERBALS\TURMERIC
  8. VITAMIN D [Concomitant]
     Active Substance: VITAMIN D NOS

REACTIONS (4)
  - Menstruation irregular [Not Recovered/Not Resolved]
  - Off label use [Recovered/Resolved]
  - Vaginal haemorrhage [Not Recovered/Not Resolved]
  - Uterine leiomyoma [Unknown]

NARRATIVE: CASE EVENT DATE: 201911
